FAERS Safety Report 20660328 (Version 1)
Quarter: 2022Q1

REPORT INFORMATION
  Report Type: Report from Study
  Country: US (occurrence: None)
  Receive Date: 20220331
  Receipt Date: 20220331
  Transmission Date: 20220423
  Serious: Yes (Hospitalization)
  Sender: FDA-Public Use
  Company Number: US-Eisai Medical Research-EC-2022-110093

PATIENT
  Age: 78 Year
  Sex: Female

DRUGS (1)
  1. LENVIMA [Suspect]
     Active Substance: LENVATINIB
     Indication: Endometrial cancer
     Route: 048
     Dates: start: 20220302, end: 20220320

REACTIONS (4)
  - Nausea [Recovering/Resolving]
  - Dysphonia [Unknown]
  - Hypersomnia [Unknown]
  - Confusional state [Unknown]

NARRATIVE: CASE EVENT DATE: 20220301
